FAERS Safety Report 14248939 (Version 1)
Quarter: 2017Q4

REPORT INFORMATION
  Report Type: Spontaneous
  Country: US (occurrence: US)
  Receive Date: 20171204
  Receipt Date: 20171204
  Transmission Date: 20180321
  Serious: No
  Sender: FDA-Public Use
  Company Number: US-MYLANLABS-2017M1071228

PATIENT
  Sex: Female

DRUGS (2)
  1. AMFETAMINE/DEXAMFETAMINE [Suspect]
     Active Substance: AMPHETAMINE SULFATE\DEXTROAMPHETAMINE
     Indication: DEPRESSION
     Dosage: 5 MG, UNK
     Route: 048
  2. AMFETAMINE/DEXAMFETAMINE [Suspect]
     Active Substance: AMPHETAMINE SULFATE\DEXTROAMPHETAMINE
     Dosage: 7.5 MG, UNK
     Route: 048

REACTIONS (2)
  - Product use in unapproved indication [Unknown]
  - Lethargy [Unknown]
